FAERS Safety Report 5313235-0 (Version None)
Quarter: 2007Q2

REPORT INFORMATION
  Report Type: 
  Country: None (occurrence: None)
  Receive Date: 20070501
  Receipt Date: 20070420
  Transmission Date: 20071010
  Serious: Yes (Other)
  Sender: FDA-Public Use
  Company Number: PHBS2007BR06190

PATIENT
  Age: 42 Year
  Sex: Female

DRUGS (7)
  1. RIVOTRIL [Concomitant]
     Indication: INSOMNIA
     Dosage: UNK, UNK
     Route: 048
  2. TRILEPTAL [Suspect]
     Indication: FIBROMYALGIA
     Dosage: 450 MG/DAY
     Route: 048
  3. TRILEPTAL [Suspect]
     Dosage: 300 MG/DAY
     Route: 048
  4. TRILEPTAL [Suspect]
     Dosage: 600 MG, BID
     Route: 048
  5. TRILEPTAL [Suspect]
     Dosage: 150 MG/DAY
     Route: 048
  6. ANALGESICS [Concomitant]
  7. FLUOXETINE [Concomitant]

REACTIONS (10)
  - DRUG DEPENDENCE [None]
  - DRUG TOXICITY [None]
  - DYSKINESIA [None]
  - DYSPNOEA [None]
  - FACIAL SPASM [None]
  - LARYNGOSPASM [None]
  - MUSCLE SPASMS [None]
  - PAIN [None]
  - RASH MACULAR [None]
  - SPEECH DISORDER [None]
